FAERS Safety Report 7410393-9 (Version None)
Quarter: 2011Q2

REPORT INFORMATION
  Report Type: 
  Country: None (occurrence: None)
  Receive Date: 20110412
  Receipt Date: 20110404
  Transmission Date: 20111010
  Serious: Yes (Hospitalization)
  Sender: FDA-Public Use
  Company Number: US-MERCK-1005USA02003

PATIENT
  Age: 65 Year
  Sex: Female

DRUGS (14)
  1. FOSAMAX [Suspect]
     Route: 048
     Dates: start: 20050725, end: 20070901
  2. SINGULAIR [Concomitant]
     Indication: ASTHMA
     Route: 048
     Dates: start: 19950101
  3. VITAMINS (UNSPECIFIED) [Concomitant]
     Route: 065
  4. FEXOFENADINE HYDROCHLORIDE [Concomitant]
     Indication: ASTHMA
     Route: 065
     Dates: start: 19950101
  5. FEXOFENADINE HYDROCHLORIDE [Concomitant]
     Indication: SEASONAL ALLERGY
     Route: 065
     Dates: start: 19950101
  6. ADVAIR DISKUS 100/50 [Concomitant]
     Indication: SEASONAL ALLERGY
     Route: 055
     Dates: start: 19950101
  7. THYROID [Concomitant]
     Route: 048
     Dates: start: 19700101
  8. FOSAMAX [Suspect]
     Indication: OSTEOPOROSIS
     Route: 048
     Dates: start: 19960408, end: 20050725
  9. SINGULAIR [Concomitant]
     Indication: SEASONAL ALLERGY
     Route: 048
     Dates: start: 19950101
  10. FOSAMAX [Suspect]
     Indication: OSTEOPENIA
     Route: 048
     Dates: start: 19960408, end: 20050725
  11. PREDNISONE [Concomitant]
     Route: 065
     Dates: start: 19911210
  12. ADVAIR DISKUS 100/50 [Concomitant]
     Indication: ASTHMA
     Route: 055
     Dates: start: 19950101
  13. BONIVA [Suspect]
     Indication: OSTEOPENIA
     Route: 065
     Dates: start: 20070901, end: 20081201
  14. FOSAMAX [Suspect]
     Route: 048
     Dates: start: 20050725, end: 20070901

REACTIONS (37)
  - TOOTH DISORDER [None]
  - FOOT DEFORMITY [None]
  - INSOMNIA [None]
  - CATARACT [None]
  - FEMUR FRACTURE [None]
  - LOBAR PNEUMONIA [None]
  - BUNION [None]
  - MITRAL VALVE INCOMPETENCE [None]
  - CARDIAC MURMUR [None]
  - TACHYCARDIA [None]
  - SENSITIVITY OF TEETH [None]
  - ABDOMINAL DISCOMFORT [None]
  - PALPITATIONS [None]
  - ATRIAL FIBRILLATION [None]
  - ORAL CANDIDIASIS [None]
  - BLOOD THYROID STIMULATING HORMONE DECREASED [None]
  - PNEUMONIA [None]
  - ANAEMIA OF CHRONIC DISEASE [None]
  - BACK DISORDER [None]
  - PAIN IN JAW [None]
  - IMPAIRED HEALING [None]
  - COMPRESSION FRACTURE [None]
  - PAIN IN EXTREMITY [None]
  - TEMPOROMANDIBULAR JOINT SYNDROME [None]
  - PULMONARY MASS [None]
  - GRANULOMA [None]
  - COLONIC POLYP [None]
  - ARTERIOSCLEROSIS CORONARY ARTERY [None]
  - INTERVERTEBRAL DISC DEGENERATION [None]
  - FATIGUE [None]
  - AORTIC VALVE INCOMPETENCE [None]
  - GINGIVAL BLEEDING [None]
  - MELANOCYTIC NAEVUS [None]
  - MUSCULOSKELETAL DISCOMFORT [None]
  - WEIGHT DECREASED [None]
  - TREMOR [None]
  - TOOTH FRACTURE [None]
